FAERS Safety Report 21576656 (Version 1)
Quarter: 2022Q4

REPORT INFORMATION
  Report Type: Report from Study
  Country: US (occurrence: US)
  Receive Date: 20221110
  Receipt Date: 20221110
  Transmission Date: 20230112
  Serious: Yes (Other)
  Sender: FDA-Public Use
  Company Number: US-ABBVIE-21K-163-4166759-00

PATIENT
  Age: 58 Year
  Sex: Female

DRUGS (7)
  1. HUMIRA [Suspect]
     Active Substance: ADALIMUMAB
     Indication: Intestinal stenosis
     Dosage: 40 MILLIGRAM
     Route: 058
     Dates: start: 20210614, end: 20210920
  2. HUMIRA [Suspect]
     Active Substance: ADALIMUMAB
     Indication: Crohn^s disease
  3. Pfizer BioNTech Covid vaccine [Concomitant]
     Indication: COVID-19 immunisation
     Dosage: 1ST DOSE
     Route: 030
     Dates: start: 20210604, end: 20210604
  4. Pfizer BioNTech Covid vaccine [Concomitant]
     Indication: COVID-19 immunisation
     Dosage: 2ND DOSE
     Route: 030
     Dates: start: 20210428, end: 20210428
  5. Pfizer BioNTech Covid vaccine [Concomitant]
     Indication: COVID-19 immunisation
     Dosage: 3RD DOSE
     Route: 030
     Dates: start: 20211230, end: 20211230
  6. Pfizer BioNTech Covid vaccine [Concomitant]
     Indication: COVID-19 immunisation
     Dosage: BOOSTER DOSE
     Route: 030
     Dates: start: 20220531, end: 20220531
  7. Pfizer BioNTech Covid vaccine [Concomitant]
     Indication: COVID-19 immunisation
     Dosage: BOOSTER DOSE
     Route: 030
     Dates: start: 20220924, end: 20220924

REACTIONS (8)
  - Crohn^s disease [Unknown]
  - Eczema [Not Recovered/Not Resolved]
  - Drug ineffective [Unknown]
  - Colectomy [Not Recovered/Not Resolved]
  - Abdominal operation [Recovered/Resolved]
  - Dermatitis contact [Not Recovered/Not Resolved]
  - Food allergy [Not Recovered/Not Resolved]
  - Appendicectomy [Not Recovered/Not Resolved]

NARRATIVE: CASE EVENT DATE: 20211001
